FAERS Safety Report 8076973-5 (Version None)
Quarter: 2012Q1

REPORT INFORMATION
  Report Type: 
  Country: None (occurrence: None)
  Receive Date: 20120127
  Receipt Date: 20120107
  Transmission Date: 20120608
  Serious: Yes (Hospitalization)
  Sender: FDA-Public Use
  Company Number: CA-GLAXOSMITHKLINE-A0960459A

PATIENT
  Sex: Male
  Weight: 60 kg

DRUGS (4)
  1. AMLODIPINE [Concomitant]
  2. VOTRIENT [Suspect]
     Indication: RENAL CANCER METASTATIC
     Dosage: 600MG PER DAY
     Route: 048
     Dates: start: 20120106, end: 20120113
  3. AVAPRO [Concomitant]
  4. RASILEZ [Concomitant]

REACTIONS (10)
  - PLATELET COUNT DECREASED [None]
  - VOMITING [None]
  - INSOMNIA [None]
  - BLOOD PRESSURE INCREASED [None]
  - DIZZINESS [None]
  - NAUSEA [None]
  - DECREASED APPETITE [None]
  - PAIN IN EXTREMITY [None]
  - ARTHRALGIA [None]
  - HYPONATRAEMIA [None]
